FAERS Safety Report 19444266 (Version 1)
Quarter: 2021Q2

REPORT INFORMATION
  Report Type: Spontaneous
  Country: US (occurrence: US)
  Receive Date: 20210621
  Receipt Date: 20210621
  Transmission Date: 20210717
  Serious: No
  Sender: FDA-Public Use
  Company Number: US-BAYER-2021-161578

PATIENT
  Age: 38 Year
  Sex: Female

DRUGS (6)
  1. RIFAMPIN. [Concomitant]
     Active Substance: RIFAMPIN
  2. TEDIZOLID [Concomitant]
     Active Substance: TEDIZOLID
  3. AVELOX [Suspect]
     Active Substance: MOXIFLOXACIN HYDROCHLORIDE
     Indication: MYCOBACTERIUM AVIUM COMPLEX INFECTION
  4. RITUXIMAB. [Concomitant]
     Active Substance: RITUXIMAB
  5. AZITHROMYCIN ANHYDROUS. [Concomitant]
     Active Substance: AZITHROMYCIN ANHYDROUS
  6. CLOFAZIMINE [Concomitant]
     Active Substance: CLOFAZIMINE

REACTIONS (2)
  - Off label use [None]
  - Drug ineffective for unapproved indication [None]
